FAERS Safety Report 12203810 (Version 1)
Quarter: 2016Q1

REPORT INFORMATION
  Report Type: Spontaneous
  Country: US (occurrence: US)
  Receive Date: 20160323
  Receipt Date: 20160323
  Transmission Date: 20160526
  Serious: No
  Sender: FDA-Public Use
  Company Number: US-AMGEN-USASP2016033045

PATIENT
  Age: 44 Year
  Sex: Male

DRUGS (1)
  1. ENBREL [Suspect]
     Active Substance: ETANERCEPT
     Indication: ANKYLOSING SPONDYLITIS
     Dosage: 50 MG, QWK
     Route: 065

REACTIONS (4)
  - Gastrointestinal disorder [Unknown]
  - Hernia [Not Recovered/Not Resolved]
  - Abdominal pain upper [Unknown]
  - Oesophageal pain [Unknown]

NARRATIVE: CASE EVENT DATE: 2015
